FAERS Safety Report 7378121-3 (Version None)
Quarter: 2011Q1

REPORT INFORMATION
  Report Type: 
  Country: None (occurrence: None)
  Receive Date: 20110328
  Receipt Date: 20110318
  Transmission Date: 20110831
  Serious: Yes (Hospitalization)
  Sender: FDA-Public Use
  Company Number: US-US-EMD SERONO, INC.-7029830

PATIENT
  Sex: Male
  Weight: 118 kg

DRUGS (8)
  1. TRAMADOL [Concomitant]
     Indication: PAIN
  2. LISINOPRIL [Concomitant]
     Indication: PROPHYLAXIS
  3. MOTRIN [Concomitant]
     Indication: PREMEDICATION
  4. REBIF [Suspect]
     Indication: MULTIPLE SCLEROSIS
     Route: 058
     Dates: start: 20100709
  5. VYTORIN [Concomitant]
     Indication: BLOOD TRIGLYCERIDES INCREASED
     Dates: start: 20090101
  6. ROPINIROLE [Concomitant]
     Indication: MUSCLE SPASMS
  7. ASPIRIN [Concomitant]
     Indication: PROPHYLAXIS
  8. LISINOPRIL [Concomitant]
     Indication: HYPERTENSION
     Dates: start: 20090501

REACTIONS (4)
  - INJECTION SITE ERYTHEMA [None]
  - PANCREATITIS CHRONIC [None]
  - PAIN [None]
  - CHILLS [None]
